FAERS Safety Report 5392783-1 (Version None)
Quarter: 2007Q3

REPORT INFORMATION
  Report Type: 
  Country: None (occurrence: None)
  Receive Date: 20070718
  Receipt Date: 20070705
  Transmission Date: 20080115
  Serious: Yes (Other)
  Sender: FDA-Public Use
  Company Number: 230001L07GBR

PATIENT
  Age: 24 Year
  Sex: Female

DRUGS (1)
  1. REBIF [Suspect]
     Indication: MULTIPLE SCLEROSIS
     Dosage: 44 MCG, 3 IN 1 WEEKS, SUBCUTANEOUS
     Route: 058

REACTIONS (5)
  - CALCINOSIS [None]
  - FAT NECROSIS [None]
  - INJECTION SITE ERYTHEMA [None]
  - INJECTION SITE MACULE [None]
  - SUBCUTANEOUS NODULE [None]
